FAERS Safety Report 4514280-5 (Version None)
Quarter: 2004Q4

REPORT INFORMATION
  Report Type: 
  Country: None (occurrence: None)
  Receive Date: 20041124
  Receipt Date: 20041108
  Transmission Date: 20050328
  Serious: Yes (Life-Threatening, Hospitalization)
  Sender: FDA-Public Use
  Company Number: DE_041114641

PATIENT
  Age: 38 Year
  Sex: Male
  Weight: 171 kg

DRUGS (12)
  1. ZYPREXA [Suspect]
     Indication: BIPOLAR DISORDER
     Dosage: 7.5 MG DAY
     Dates: start: 20040305, end: 20040506
  2. ORFIRIL (VALPROIC ACID) [Concomitant]
  3. ORFIRIL-SLOW RELEASE(VALPROATE SODIUM) [Concomitant]
  4. HALDOL DECANOATE (HALOPERIDOL DECANOATE) [Concomitant]
  5. FLUXANOL DEPOT (FLUPETIXOL DECANOATE) [Concomitant]
  6. FLUXANOL (FLUXPENTIXOL DECANOATE) [Concomitant]
  7. LEVOTHYROXINE SODIUM [Concomitant]
  8. BETOPTIMA [Concomitant]
  9. ARTELAC (HYPROMELLOSE) [Concomitant]
  10. DIVASCAN (IPRAZOCHROME) [Concomitant]
  11. ATOSIL (ISOPROMETHAZINE HYDROCHLORIDE) [Concomitant]
  12. DIAZEPAM [Concomitant]

REACTIONS (25)
  - ABDOMINAL DISCOMFORT [None]
  - ABDOMINAL PAIN UPPER [None]
  - ASTHENIA [None]
  - BLOOD URIC ACID INCREASED [None]
  - CHOLESTASIS [None]
  - COAGULOPATHY [None]
  - DIARRHOEA [None]
  - FEELING ABNORMAL [None]
  - GASTRIC DISORDER [None]
  - HEPATIC ENCEPHALOPATHY [None]
  - HEPATIC FAILURE [None]
  - HEPATIC FUNCTION ABNORMAL [None]
  - HEPATIC NECROSIS [None]
  - HEPATOCELLULAR DAMAGE [None]
  - HEPATOMEGALY [None]
  - HEPATORENAL SYNDROME [None]
  - HYPERKALAEMIA [None]
  - LIPASE ABNORMAL [None]
  - LIVER TRANSPLANT [None]
  - MANIA [None]
  - PALLOR [None]
  - PLATELET COUNT DECREASED [None]
  - PLEURAL EFFUSION [None]
  - TRANSPLANT REJECTION [None]
  - VOMITING [None]
